FAERS Safety Report 5519201-4 (Version None)
Quarter: 2007Q4

REPORT INFORMATION
  Report Type: 
  Country: None (occurrence: None)
  Receive Date: 20071114
  Receipt Date: 20071107
  Transmission Date: 20080405
  Serious: Yes (Other)
  Sender: FDA-Public Use
  Company Number: 161-20785-07110396

PATIENT
  Age: 58 Year
  Sex: Male

DRUGS (3)
  1. THALOMID [Suspect]
     Indication: MULTIPLE MYELOMA
     Dosage: 100MG - 200MG, DAILY, ORAL, 400 MG, DAILY, ORAL
     Route: 048
     Dates: start: 20050501, end: 20050501
  2. THALOMID [Suspect]
     Indication: MULTIPLE MYELOMA
     Dosage: 100MG - 200MG, DAILY, ORAL, 400 MG, DAILY, ORAL
     Route: 048
     Dates: start: 20050401
  3. ZOLEDRONIC ACID [Suspect]
     Indication: DRUG USE FOR UNKNOWN INDICATION
     Dosage: 4 MG, MONTHLY
     Dates: start: 20050101

REACTIONS (2)
  - HENOCH-SCHONLEIN PURPURA [None]
  - LEUKOCYTOCLASTIC VASCULITIS [None]
